FAERS Safety Report 6311534-7 (Version None)
Quarter: 2009Q3

REPORT INFORMATION
  Report Type: 
  Country: None (occurrence: None)
  Receive Date: 20090817
  Receipt Date: 20090815
  Transmission Date: 20100115
  Serious: Yes (Death)
  Sender: FDA-Public Use
  Company Number: US-PFIZER INC-2009230121

PATIENT

DRUGS (2)
  1. NORVASC [Suspect]
  2. LIPITOR [Suspect]

REACTIONS (1)
  - DEATH [None]
